FAERS Safety Report 21312096 (Version 1)
Quarter: 2022Q3

REPORT INFORMATION
  Report Type: Spontaneous
  Country: US (occurrence: None)
  Receive Date: 20220909
  Receipt Date: 20220909
  Transmission Date: 20221026
  Serious: No
  Sender: FDA-Public Use
  Company Number: US-ARIS GLOBAL-202204-0657

PATIENT
  Sex: Male

DRUGS (10)
  1. OXERVATE [Suspect]
     Active Substance: CENEGERMIN-BKBJ
     Indication: Neurotrophic keratopathy
     Route: 047
     Dates: start: 20220321
  2. PRESERVATIVE FREE OTC EYE DROPS [Concomitant]
  3. JARDIANCE [Concomitant]
     Active Substance: EMPAGLIFLOZIN
  4. TOPROL XL [Concomitant]
     Active Substance: METOPROLOL SUCCINATE
     Dosage: 24 HOURS EXTENDED RELEASE
  5. PRAVASTATIN SODIUM [Concomitant]
     Active Substance: PRAVASTATIN SODIUM
  6. POTASSIUM CHLORIDE [Concomitant]
     Active Substance: POTASSIUM CHLORIDE
     Dosage: 8 MEQ ( 600 MG) TABLET SUSTAINED ACTION
  7. ELIQUIS [Concomitant]
     Active Substance: APIXABAN
  8. ZETIA [Concomitant]
     Active Substance: EZETIMIBE
  9. OLMESARTAN [Concomitant]
     Active Substance: OLMESARTAN
  10. METFORMIN HYDROCHLORIDE [Concomitant]
     Active Substance: METFORMIN HYDROCHLORIDE

REACTIONS (1)
  - Ocular hyperaemia [Unknown]
